FAERS Safety Report 6043333-8 (Version None)
Quarter: 2009Q1

REPORT INFORMATION
  Report Type: 
  Country: None (occurrence: None)
  Receive Date: 20090115
  Receipt Date: 20090112
  Transmission Date: 20090719
  Serious: Yes (Hospitalization)
  Sender: FDA-Public Use
  Company Number: 1000003159

PATIENT
  Age: 81 Year
  Sex: Female

DRUGS (4)
  1. TIAZAC [Suspect]
     Indication: HYPERTENSION
     Dosage: 240 MG (240 MG, 1 IN 1 D, ORAL
     Route: 048
     Dates: start: 19980101
  2. CRESTOR [Suspect]
     Indication: BLOOD CHOLESTEROL INCREASED
     Dosage: 20 MG (20 MG, 1 IN 1 D), ORAL
     Route: 048
     Dates: start: 20081101, end: 20081201
  3. DYAZIDE (TABLETS) [Concomitant]
  4. VYTORIN [Concomitant]

REACTIONS (3)
  - BLOOD CHOLESTEROL INCREASED [None]
  - RESTLESS LEGS SYNDROME [None]
  - TRANSIENT ISCHAEMIC ATTACK [None]
